FAERS Safety Report 5918711-5 (Version None)
Quarter: 2008Q4

REPORT INFORMATION
  Report Type: 
  Country: None (occurrence: None)
  Receive Date: 20081015
  Receipt Date: 20080619
  Transmission Date: 20090506
  Serious: No
  Sender: FDA-Public Use
  Company Number: US-ASTRAZENECA-2008UW12401

PATIENT
  Age: 69 Year
  Sex: Female
  Weight: 99.8 kg

DRUGS (8)
  1. SYMBICORT [Suspect]
     Indication: ASTHMA
     Dosage: 160/4.5 BID
     Route: 055
     Dates: start: 20080601
  2. SYNTHROID [Concomitant]
  3. LOTREL [Concomitant]
  4. TRIAMTERENE [Concomitant]
  5. ISOSORBIDE [Concomitant]
  6. ACETYLSALICYLIC ACID SRT [Concomitant]
  7. BIOFLEX [Concomitant]
  8. OSCAL [Concomitant]

REACTIONS (2)
  - NAUSEA [None]
  - RETCHING [None]
